FAERS Safety Report 9850108 (Version 1)
Quarter: 2014Q1

REPORT INFORMATION
  Report Type: Spontaneous
  Country: US (occurrence: None)
  Receive Date: 20140124
  Receipt Date: 20140124
  Transmission Date: 20141002
  Serious: Yes (Life-Threatening, Disabling, Other)
  Sender: FDA-Public Use
  Company Number: None

PATIENT
  Age: 66 Year
  Sex: Female
  Weight: 116.12 kg

DRUGS (12)
  1. ATETOROLAC TROMETHAMINE [Suspect]
     Indication: MUSCLE SPASMS
  2. METHYLPREDNISOLONE [Suspect]
  3. LANTUS [Concomitant]
  4. ZETIA [Concomitant]
  5. HUMALOG [Concomitant]
  6. BUMEX [Concomitant]
  7. CORGARD [Concomitant]
  8. AVAPRO [Concomitant]
  9. TIMOLOL [Concomitant]
  10. PLAVIX [Concomitant]
  11. ASPIRIN [Concomitant]
  12. WELLBUTRIN [Concomitant]

REACTIONS (5)
  - Vomiting [None]
  - Pain [None]
  - Gait disturbance [None]
  - Muscle spasms [None]
  - Muscle injury [None]
